FAERS Safety Report 14295649 (Version 1)
Quarter: 2017Q4

REPORT INFORMATION
  Report Type: Spontaneous
  Country: US (occurrence: US)
  Receive Date: 20171218
  Receipt Date: 20171218
  Transmission Date: 20180321
  Serious: No
  Sender: FDA-Public Use
  Company Number: US-SHIRE-US201720215

PATIENT

DRUGS (1)
  1. XIIDRA [Suspect]
     Active Substance: LIFITEGRAST
     Indication: DRY EYE
     Dosage: 5 %, 1X/DAY:QD
     Route: 047

REACTIONS (4)
  - Instillation site inflammation [Unknown]
  - Instillation site erythema [Unknown]
  - Product quality issue [Unknown]
  - Drug ineffective [Unknown]
